FAERS Safety Report 8849646 (Version 2)
Quarter: 2012Q4

REPORT INFORMATION
  Report Type: 
  Country: US (occurrence: US)
  Receive Date: 20121019
  Receipt Date: 20121109
  Transmission Date: 20130627
  Serious: No
  Sender: FDA-Public Use
  Company Number: US-VERTEX PHARMACEUTICAL INC.-2012-022735

PATIENT
  Age: 48 Year
  Sex: Female
  Weight: 91 kg

DRUGS (6)
  1. INCIVEK [Suspect]
     Indication: HEPATITIS C
     Dosage: 750 mg, tid
     Route: 048
     Dates: start: 20120904, end: 20121008
  2. RIBAVIRIN [Suspect]
     Indication: HEPATITIS C
     Dosage: 600 mg, bid
     Route: 048
     Dates: start: 20120904
  3. PEGASYS [Suspect]
     Indication: HEPATITIS C
     Dosage: 180 ?g, weekly
     Route: 058
     Dates: start: 20120904
  4. REYATAZ [Concomitant]
  5. NORVIR [Concomitant]
  6. TRUVADA [Concomitant]

REACTIONS (4)
  - Rash maculo-papular [Recovered/Resolved]
  - Oral disorder [Unknown]
  - Oropharyngeal pain [Unknown]
  - Pruritus [Recovered/Resolved]
